FAERS Safety Report 23735761 (Version 1)
Quarter: 2024Q2

REPORT INFORMATION
  Report Type: Spontaneous
  Country: CN (occurrence: CN)
  Receive Date: 20240412
  Receipt Date: 20240412
  Transmission Date: 20240716
  Serious: Yes (Hospitalization, Other)
  Sender: FDA-Public Use
  Company Number: CN-Accord-418482

PATIENT
  Age: 77 Year
  Sex: Male

DRUGS (2)
  1. BICALUTAMIDE [Suspect]
     Active Substance: BICALUTAMIDE
     Indication: Prostate cancer
  2. GOSERELIN ACETATE [Suspect]
     Active Substance: GOSERELIN ACETATE
     Indication: Prostate cancer
     Dosage: 1/28 D ?EXTENDED-RELEASE

REACTIONS (3)
  - Diffuse large B-cell lymphoma [Recovering/Resolving]
  - Metastases to lung [Recovering/Resolving]
  - Rectal cancer [Recovering/Resolving]
